FAERS Safety Report 14073451 (Version 4)
Quarter: 2018Q1

REPORT INFORMATION
  Report Type: Spontaneous
  Country: JP (occurrence: JP)
  Receive Date: 20171010
  Receipt Date: 20180110
  Transmission Date: 20180508
  Serious: Yes (Death, Hospitalization)
  Sender: FDA-Public Use
  Company Number: JP-SA-2017SA183906

PATIENT
  Age: 49 Year
  Sex: Male

DRUGS (18)
  1. CALCIUM LEVOFOLINATE [Concomitant]
     Active Substance: LEVOLEUCOVORIN CALCIUM
     Indication: COLON CANCER
     Route: 065
     Dates: start: 20160420, end: 20160420
  2. DEXART [Concomitant]
     Active Substance: DEXAMETHASONE SODIUM PHOSPHATE
     Route: 065
     Dates: start: 20160524, end: 20160524
  3. ELPLAT [Suspect]
     Active Substance: OXALIPLATIN
     Indication: COLON CANCER
     Route: 041
     Dates: start: 20160420, end: 20160420
  4. LOXOPROFEN [Concomitant]
     Active Substance: LOXOPROFEN
     Route: 065
     Dates: start: 20160317
  5. REBAMIPIDE [Concomitant]
     Active Substance: REBAMIPIDE
     Route: 065
     Dates: start: 20160317
  6. ZOLEDRONIC ACID [Concomitant]
     Active Substance: ZOLEDRONIC ACID
     Route: 065
     Dates: start: 20160420, end: 20160524
  7. ELPLAT [Suspect]
     Active Substance: OXALIPLATIN
     Indication: COLON CANCER
     Route: 041
     Dates: start: 20160524, end: 20160524
  8. 5-FU [Suspect]
     Active Substance: FLUOROURACIL
     Indication: COLON CANCER
     Route: 040
     Dates: start: 20160420, end: 20160420
  9. 5-FU [Suspect]
     Active Substance: FLUOROURACIL
     Indication: COLON CANCER
     Route: 041
     Dates: start: 20160420, end: 20160420
  10. AVASTIN [Concomitant]
     Active Substance: BEVACIZUMAB
     Indication: COLON CANCER
     Route: 065
     Dates: start: 20160420, end: 20160420
  11. MAGMITT [Concomitant]
     Active Substance: MAGNESIUM OXIDE
     Route: 065
     Dates: start: 20160516
  12. DEXART [Concomitant]
     Active Substance: DEXAMETHASONE SODIUM PHOSPHATE
     Route: 065
     Dates: start: 20160420, end: 20160420
  13. 5-FU [Suspect]
     Active Substance: FLUOROURACIL
     Indication: COLON CANCER
     Route: 040
     Dates: start: 20160524, end: 20160524
  14. 5-FU [Suspect]
     Active Substance: FLUOROURACIL
     Indication: COLON CANCER
     Route: 040
     Dates: start: 20160524, end: 20160524
  15. OXYCONTIN [Concomitant]
     Active Substance: OXYCODONE HYDROCHLORIDE
     Route: 065
     Dates: start: 20160517
  16. CALCIUM LEVOFOLINATE [Concomitant]
     Active Substance: LEVOLEUCOVORIN CALCIUM
     Indication: COLON CANCER
     Route: 065
     Dates: start: 20160524, end: 20160524
  17. AVASTIN [Concomitant]
     Active Substance: BEVACIZUMAB
     Indication: COLON CANCER
     Route: 065
     Dates: start: 20160524, end: 20160524
  18. PARIET [Concomitant]
     Active Substance: RABEPRAZOLE SODIUM
     Route: 065
     Dates: start: 20160317

REACTIONS (5)
  - Hepatic encephalopathy [Recovering/Resolving]
  - Depression [Unknown]
  - Hyperammonaemia [Recovered/Resolved]
  - Decreased appetite [Recovering/Resolving]
  - Dizziness [Unknown]

NARRATIVE: CASE EVENT DATE: 20160516
